FAERS Safety Report 15066399 (Version 1)
Quarter: 2018Q2

REPORT INFORMATION
  Report Type: Spontaneous
  Country: US (occurrence: US)
  Receive Date: 20180606
  Receipt Date: 20180606
  Transmission Date: 20180711
  Serious: Yes (Disabling)
  Sender: FDA-Public Use
  Company Number: None

PATIENT
  Age: 70 Year
  Sex: Female
  Weight: 77 kg

DRUGS (4)
  1. GEL 7 NEUTRAL TOPICAL FLUORIDE GEL MINT [Suspect]
     Active Substance: SODIUM FLUORIDE
  2. THYROXIN [Concomitant]
     Active Substance: LEVOTHYROXINE
  3. ACIMAX [Concomitant]
     Active Substance: OMEPRAZOLE
  4. ESTRADOT [Concomitant]
     Active Substance: ESTRADIOL

REACTIONS (3)
  - Asthenia [None]
  - Fatigue [None]
  - Gait disturbance [None]

NARRATIVE: CASE EVENT DATE: 20180606
